FAERS Safety Report 16057262 (Version 6)
Quarter: 2021Q3

REPORT INFORMATION
  Report Type: Spontaneous
  Country: US (occurrence: US)
  Receive Date: 20190311
  Receipt Date: 20210826
  Transmission Date: 20211014
  Serious: No
  Sender: FDA-Public Use
  Company Number: US-PFIZER INC-2019096944

PATIENT
  Age: 57 Year
  Sex: Female

DRUGS (2)
  1. LYRICA [Suspect]
     Active Substance: PREGABALIN
     Indication: PAIN
     Dosage: 1 DF, 2X/DAY (1 CAP BID)
     Route: 048
     Dates: end: 201902
  2. LYRICA [Suspect]
     Active Substance: PREGABALIN
     Indication: FIBROMYALGIA
     Dosage: 225 MG,2X/DAY

REACTIONS (6)
  - Pain in extremity [Unknown]
  - Burning sensation [Unknown]
  - Paraesthesia [Unknown]
  - Eye disorder [Unknown]
  - Insomnia [Unknown]
  - Product dose omission issue [Unknown]
